FAERS Safety Report 18578412 (Version 2)
Quarter: 2020Q4

REPORT INFORMATION
  Report Type: Spontaneous
  Country: IT (occurrence: IT)
  Receive Date: 20201204
  Receipt Date: 20201210
  Transmission Date: 20210114
  Serious: Yes (Other)
  Sender: FDA-Public Use
  Company Number: IT-AMGEN-ITASP2020196621

PATIENT
  Age: 44 Year
  Sex: Female

DRUGS (2)
  1. AIMOVIG [Suspect]
     Active Substance: ERENUMAB-AOOE
     Dosage: 140 MILLIGRAM, BID
     Route: 065
     Dates: start: 20191203, end: 20201020
  2. AIMOVIG [Suspect]
     Active Substance: ERENUMAB-AOOE
     Indication: PRODUCT USED FOR UNKNOWN INDICATION
     Dosage: 70 MILLIGRAM
     Route: 065
     Dates: start: 20190716

REACTIONS (5)
  - Paraesthesia [Unknown]
  - Prescribed overdose [Unknown]
  - Syncope [Unknown]
  - Dizziness [Unknown]
  - Disorientation [Unknown]

NARRATIVE: CASE EVENT DATE: 202011
